FAERS Safety Report 19180828 (Version 1)
Quarter: 2021Q2

REPORT INFORMATION
  Report Type: Spontaneous
  Country: CN (occurrence: CN)
  Receive Date: 20210426
  Receipt Date: 20210426
  Transmission Date: 20210717
  Serious: Yes (Other)
  Sender: FDA-Public Use
  Company Number: CN-PFIZER INC-2021399185

PATIENT
  Age: 87 Year
  Sex: Male

DRUGS (1)
  1. ZYVOX [Suspect]
     Active Substance: LINEZOLID
     Dosage: UNK
     Route: 048

REACTIONS (4)
  - Product packaging difficult to open [Unknown]
  - Ascites [Unknown]
  - Condition aggravated [Unknown]
  - Oedema peripheral [Unknown]
